FAERS Safety Report 8422412-1 (Version None)
Quarter: 2012Q2

REPORT INFORMATION
  Report Type: 
  Country: None (occurrence: None)
  Receive Date: 20120608
  Receipt Date: 20120606
  Transmission Date: 20120825
  Serious: Yes (Death)
  Sender: FDA-Public Use
  Company Number: AU-B.I. PHARMACEUTICALS,INC./RIDGEFIELD-2012-AU-00986AU

PATIENT
  Sex: Female
  Weight: 50 kg

DRUGS (9)
  1. NORDIP [Concomitant]
     Dosage: 5 MG
     Route: 048
  2. PANADOL OSTEO [Concomitant]
     Dosage: 3990 MG
     Route: 048
  3. RAMIPRIL [Concomitant]
     Dosage: 5 MG
     Route: 048
  4. PRADAXA [Suspect]
     Indication: CEREBROVASCULAR ACCIDENT PROPHYLAXIS
     Dosage: 220 MG
     Dates: start: 20110704, end: 20120520
  5. CALCIUM CARBONATE [Concomitant]
     Dosage: 1500 MG
     Route: 048
  6. PRADAXA [Suspect]
     Indication: ATRIAL FIBRILLATION
  7. LANOXIN [Concomitant]
     Dosage: 125 MCG
     Route: 048
  8. ZIMSTAT [Concomitant]
     Dosage: 80 MG
     Route: 048
  9. GENTEAL [Concomitant]
     Dosage: 3MG/ML
     Route: 031

REACTIONS (3)
  - MOUTH HAEMORRHAGE [None]
  - VENTRICULAR FIBRILLATION [None]
  - LOSS OF CONSCIOUSNESS [None]
